FAERS Safety Report 5417761-5 (Version None)
Quarter: 2007Q3

REPORT INFORMATION
  Report Type: 
  Country: None (occurrence: None)
  Receive Date: 20070817
  Receipt Date: 20070810
  Transmission Date: 20080115
  Serious: Yes (Other)
  Sender: FDA-Public Use
  Company Number: PHEH2007US04410

PATIENT
  Age: 47 Year
  Sex: Female

DRUGS (3)
  1. ZELNORM [Suspect]
     Indication: IRRITABLE BOWEL SYNDROME
     Dosage: 6 MG, BID
     Route: 048
     Dates: start: 20030314, end: 20070402
  2. RITALIN [Concomitant]
  3. LAMICTAL [Concomitant]

REACTIONS (7)
  - AORTIC VALVE INCOMPETENCE [None]
  - CARDIAC MURMUR [None]
  - CHEST PAIN [None]
  - DYSPNOEA [None]
  - HYPERTENSION [None]
  - MITRAL VALVE INCOMPETENCE [None]
  - TRICUSPID VALVE INCOMPETENCE [None]
